FAERS Safety Report 9456723 (Version 1)
Quarter: 2013Q3

REPORT INFORMATION
  Report Type: Spontaneous
  Country: US (occurrence: US)
  Receive Date: 20130813
  Receipt Date: 20130813
  Transmission Date: 20140515
  Serious: Yes (Hospitalization)
  Sender: FDA-Public Use
  Company Number: US-B.I. PHARMACEUTICALS,INC./RIDGEFIELD-2013-BI-23961BP

PATIENT
  Age: 69 Year
  Sex: Male

DRUGS (13)
  1. PRADAXA [Suspect]
     Indication: PRODUCT USED FOR UNKNOWN INDICATION
     Dosage: 300 MG
     Route: 048
     Dates: start: 20130612, end: 20130719
  2. AMARYL [Concomitant]
     Indication: DIABETES MELLITUS
     Dosage: 2 MG
     Route: 048
  3. METOPROLOL [Concomitant]
     Dosage: 50 MG
     Route: 048
  4. NITROSTAT [Concomitant]
  5. FLEXERIL [Concomitant]
     Route: 048
  6. ASPIRIN [Concomitant]
     Dosage: 325 MG
     Route: 048
  7. OMEPRAZOLE [Concomitant]
     Dosage: 40 MG
     Route: 048
  8. ALLOPURINOL [Concomitant]
     Indication: GOUT
     Dosage: 150 MG
     Route: 048
  9. FELODIPINE [Concomitant]
     Dosage: 5 MG
     Route: 048
  10. FLUTICASONE [Concomitant]
     Dosage: FORMULATION: (NASAL SPRAY)
  11. FERROUS SULFATE [Concomitant]
     Dosage: 325 MG
     Route: 048
  12. CRESTOR [Concomitant]
     Indication: BLOOD CHOLESTEROL INCREASED
     Dosage: 10 MG
     Route: 048
  13. HYDROCODONE [Concomitant]
     Indication: PAIN
     Route: 048

REACTIONS (3)
  - Confusional state [Recovered/Resolved]
  - Dizziness [Recovered/Resolved]
  - Dyspnoea [Recovered/Resolved]
